FAERS Safety Report 6803387-5 (Version None)
Quarter: 2010Q2

REPORT INFORMATION
  Report Type: 
  Country: None (occurrence: None)
  Receive Date: 20100628
  Receipt Date: 20100618
  Transmission Date: 20101027
  Serious: No
  Sender: FDA-Public Use
  Company Number: CA-ROCHE-709287

PATIENT
  Sex: Male

DRUGS (4)
  1. PEGASYS [Suspect]
     Indication: HEPATITIS C
     Route: 058
     Dates: start: 20081215, end: 20100101
  2. COPEGUS [Suspect]
     Indication: HEPATITIS C
     Dosage: FREQUENCY: 2 EVERY MORNING AND 3 EVERY EVENING
     Route: 048
     Dates: start: 20081215, end: 20100101
  3. GABAPENTIN [Concomitant]
     Indication: PAIN
     Route: 048
  4. PERCOCET [Concomitant]
     Indication: PAIN
     Dosage: FREQUENCY: AS PER NEEDED
     Route: 048

REACTIONS (1)
  - DECREASED APPETITE [None]
